FAERS Safety Report 16365536 (Version 1)
Quarter: 2019Q2

REPORT INFORMATION
  Report Type: Spontaneous
  Country: US (occurrence: US)
  Receive Date: 20190529
  Receipt Date: 20190529
  Transmission Date: 20190711
  Serious: No
  Sender: FDA-Public Use
  Company Number: US-009507513-1905USA012851

PATIENT
  Sex: Female

DRUGS (2)
  1. CRINONE [Suspect]
     Active Substance: PROGESTERONE
  2. FOLLISTIM AQ [Suspect]
     Active Substance: FOLLITROPIN
     Indication: INFERTILITY FEMALE
     Dosage: 300 INTERNATIONAL UNIT, QD
     Route: 058
     Dates: start: 20190411

REACTIONS (1)
  - Adverse event [Unknown]
